FAERS Safety Report 12471153 (Version 6)
Quarter: 2019Q1

REPORT INFORMATION
  Report Type: Report from Study
  Country: DE (occurrence: DE)
  Receive Date: 20160616
  Receipt Date: 20190124
  Transmission Date: 20190417
  Serious: Yes (Hospitalization, Other)
  Sender: FDA-Public Use
  Company Number: DE-ROCHE-1679413

PATIENT
  Age: 66 Year
  Sex: Female
  Weight: 64 kg

DRUGS (2)
  1. TRASTUZUMAB. [Suspect]
     Active Substance: TRASTUZUMAB
     Indication: HER-2 POSITIVE BREAST CANCER
     Route: 058
     Dates: start: 20151125
  2. TRASTUZUMAB. [Suspect]
     Active Substance: TRASTUZUMAB
     Indication: BREAST CANCER
     Route: 042
     Dates: start: 20151104, end: 20151104

REACTIONS (9)
  - Mitral valve incompetence [Not Recovered/Not Resolved]
  - Onychoclasis [Unknown]
  - Erythema [Unknown]
  - Atrial fibrillation [Recovered/Resolved]
  - Tricuspid valve incompetence [Not Recovered/Not Resolved]
  - Myalgia [Unknown]
  - Arthralgia [Unknown]
  - Pruritus [Unknown]
  - Pain [Unknown]

NARRATIVE: CASE EVENT DATE: 20151126
